FAERS Safety Report 8426241 (Version 2)
Quarter: 2012Q4

REPORT INFORMATION
  Report Type: 
  Country: DE (occurrence: JP)
  Receive Date: 20120226
  Receipt Date: 20121217
  Transmission Date: 20130627
  Serious: Yes (Life-Threatening, Hospitalization)
  Sender: FDA-Public Use
  Company Number: JP-BRISTOL-MYERS SQUIBB COMPANY-16409393

PATIENT
  Age: 70 Year
  Sex: Male
  Weight: 65 kg

DRUGS (4)
  1. ERBITUX SOLN FOR INF 5MG/ML [Suspect]
     Indication: COLORECTAL CANCER RECURRENT
     Route: 041
     Dates: start: 20111116, end: 20111116
  2. 5-FLUOROURACIL [Concomitant]
     Indication: COLORECTAL CANCER RECURRENT
     Route: 042
     Dates: start: 20111116, end: 20111116
  3. CALCIUM FOLINATE [Concomitant]
     Indication: COLORECTAL CANCER RECURRENT
     Route: 041
     Dates: start: 20111116, end: 20111116
  4. IRINOTECAN [Concomitant]
     Indication: COLORECTAL CANCER RECURRENT
     Route: 041
     Dates: start: 20111116, end: 20111116

REACTIONS (2)
  - Infusion related reaction [Recovering/Resolving]
  - Pancreatitis acute [Recovering/Resolving]
